FAERS Safety Report 16427247 (Version 1)
Quarter: 2019Q3

REPORT INFORMATION
  Report Type: Spontaneous
  Country: US (occurrence: US)
  Receive Date: 20190612
  Receipt Date: 20190612
  Transmission Date: 20191004
  Serious: Yes (Other)
  Sender: FDA-Public Use
  Company Number: None

PATIENT
  Age: 35 Year
  Sex: Female
  Weight: 51.75 kg

DRUGS (2)
  1. LOW DOSE NALTREXONE [Concomitant]
     Active Substance: NALTREXONE
  2. COPAXONE [Suspect]
     Active Substance: GLATIRAMER ACETATE
     Indication: MULTIPLE SCLEROSIS
     Dates: start: 20040201, end: 20180901

REACTIONS (1)
  - Lipoatrophy [None]

NARRATIVE: CASE EVENT DATE: 20120101
